FAERS Safety Report 15107425 (Version 1)
Quarter: 2018Q3

REPORT INFORMATION
  Report Type: Spontaneous
  Country: CH (occurrence: CH)
  Receive Date: 20180704
  Receipt Date: 20180704
  Transmission Date: 20181010
  Serious: Yes (Hospitalization, Other)
  Sender: FDA-Public Use
  Company Number: CH-ELI_LILLY_AND_COMPANY-CH201806011126

PATIENT
  Age: 80 Year
  Sex: Female

DRUGS (1)
  1. HUMATROPE [Suspect]
     Active Substance: SOMATROPIN
     Indication: PRODUCT USED FOR UNKNOWN INDICATION
     Dosage: UNK, UNKNOWN
     Route: 065
     Dates: start: 2003

REACTIONS (6)
  - Hypopituitarism [Unknown]
  - Drug ineffective [Unknown]
  - Sepsis [Unknown]
  - Wrong dose [Unknown]
  - Wrong technique in product usage process [Unknown]
  - Urinary tract infection [Unknown]
